FAERS Safety Report 17150669 (Version 1)
Quarter: 2019Q4

REPORT INFORMATION
  Report Type: Spontaneous
  Country: SE (occurrence: SE)
  Receive Date: 20191213
  Receipt Date: 20191213
  Transmission Date: 20200122
  Serious: Yes (Hospitalization)
  Sender: FDA-Public Use
  Company Number: SE-ALLERGAN-1950836US

PATIENT
  Sex: Female

DRUGS (2)
  1. ESCITALOPRAM OXALATE - BP [Suspect]
     Active Substance: ESCITALOPRAM OXALATE
     Indication: PRODUCT USED FOR UNKNOWN INDICATION
     Dosage: OVERDOSE: UNKNOWN DOSE
     Route: 048
     Dates: start: 20180411, end: 20180411
  2. LERGIGAN (PROMETHAZINE HYDROCHLORIDE) [Suspect]
     Active Substance: PROMETHAZINE HYDROCHLORIDE
     Indication: PRODUCT USED FOR UNKNOWN INDICATION
     Dosage: 2500 MG, UNKNOWN
     Route: 048
     Dates: start: 20180411, end: 20180411

REACTIONS (8)
  - Confusional state [Unknown]
  - Disorientation [Unknown]
  - Intentional self-injury [Unknown]
  - Dry mouth [Unknown]
  - Tremor [Unknown]
  - Electrocardiogram QT prolonged [Unknown]
  - Product administered to patient of inappropriate age [Unknown]
  - Intentional overdose [Unknown]

NARRATIVE: CASE EVENT DATE: 20180411
